FAERS Safety Report 6073786-0 (Version None)
Quarter: 2009Q1

REPORT INFORMATION
  Report Type: 
  Country: None (occurrence: None)
  Receive Date: 20090209
  Receipt Date: 20090209
  Transmission Date: 20090719
  Serious: Yes (Other)
  Sender: FDA-Public Use
  Company Number: None

PATIENT
  Age: 41 Year
  Sex: Female
  Weight: 68 kg

DRUGS (3)
  1. BENEFIBER [Suspect]
     Dosage: ORAL
     Route: 048
  2. BIO REDUX (CHITOSAN, POLIGUSAM) [Concomitant]
  3. REDUFIM (CHITOSAN, POLIGLUSAM) [Concomitant]

REACTIONS (4)
  - INTENTIONAL DRUG MISUSE [None]
  - OFF LABEL USE [None]
  - SELF-MEDICATION [None]
  - WEIGHT DECREASED [None]
